FAERS Safety Report 12568466 (Version 3)
Quarter: 2016Q3

REPORT INFORMATION
  Report Type: Report from Study
  Country: US (occurrence: US)
  Receive Date: 20160718
  Receipt Date: 20160921
  Transmission Date: 20161109
  Serious: Yes (Other)
  Sender: FDA-Public Use
  Company Number: PHEH2016US017516

PATIENT
  Age: 36 Year
  Sex: Female

DRUGS (1)
  1. GILENYA [Suspect]
     Active Substance: FINGOLIMOD HYDROCHLORIDE
     Indication: MULTIPLE SCLEROSIS
     Dosage: 0.5 MG, QD
     Route: 048
     Dates: start: 20110513

REACTIONS (6)
  - Speech disorder [Unknown]
  - Malaise [Unknown]
  - Mental disorder [Unknown]
  - Mood altered [Unknown]
  - Dementia [Unknown]
  - Asthma [Unknown]

NARRATIVE: CASE EVENT DATE: 201607
